FAERS Safety Report 5140911-5 (Version None)
Quarter: 2006Q4

REPORT INFORMATION
  Report Type: 
  Country: None (occurrence: None)
  Receive Date: 20060914
  Receipt Date: 20060308
  Transmission Date: 20070319
  Serious: Yes (Hospitalization)
  Sender: FDA-Public Use
  Company Number: PHEH2006US02916

PATIENT
  Age: 52 Year
  Sex: Female
  Weight: 120.6 kg

DRUGS (7)
  1. DIOVAN [Suspect]
     Indication: HYPERTENSION
     Dosage: 80 MG, QD, ORAL
     Route: 048
     Dates: start: 20060217
  2. REQUIP [Suspect]
     Indication: RESTLESS LEGS SYNDROME
     Dosage: 1 MG,QD, ORAL
     Route: 048
     Dates: start: 20060217, end: 20060225
  3. SARAFEM (FLUOXETINE) [Concomitant]
  4. SYNTHROID [Concomitant]
  5. ALLEGRA [Concomitant]
  6. ASPIRINE BABY (ACETYLSALICYLIC ACID) [Concomitant]
  7. IRON SUPPLEMENTS (NO INGREDIENTS/SUBSTANCES) [Concomitant]

REACTIONS (2)
  - BLOOD PRESSURE FLUCTUATION [None]
  - SYNCOPE [None]
